FAERS Safety Report 16439116 (Version 1)
Quarter: 2019Q2

REPORT INFORMATION
  Report Type: Spontaneous
  Country: US (occurrence: US)
  Receive Date: 20190617
  Receipt Date: 20190617
  Transmission Date: 20190711
  Serious: No
  Sender: FDA-Public Use
  Company Number: US-BAYER-2019-114578

PATIENT
  Age: 79 Year
  Sex: Male
  Weight: 95.24 kg

DRUGS (1)
  1. MIRALAX [Suspect]
     Active Substance: POLYETHYLENE GLYCOL 3350
     Indication: CONSTIPATION
     Dosage: 17 G, QD
     Route: 048

REACTIONS (3)
  - Bowel movement irregularity [Unknown]
  - Off label use [Unknown]
  - Product use in unapproved indication [Unknown]
